FAERS Safety Report 19624683 (Version 2)
Quarter: 2021Q3

REPORT INFORMATION
  Report Type: Spontaneous
  Country: US (occurrence: US)
  Receive Date: 20210729
  Receipt Date: 20210826
  Transmission Date: 20211014
  Serious: No
  Sender: FDA-Public Use
  Company Number: US-EPICPHARMA-US-2021EPCSPO00763

PATIENT

DRUGS (1)
  1. DEXTROAMPHET SACCHARAT, AMPHET ASPARTATE, DEXTROAMPHET SULFATE AND AMPHET SULFAT [Suspect]
     Active Substance: AMPHETAMINE ASPARTATE\AMPHETAMINE SULFATE\DEXTROAMPHETAMINE SACCHARATE\DEXTROAMPHETAMINE SULFATE
     Indication: PRODUCT USED FOR UNKNOWN INDICATION
     Route: 065

REACTIONS (13)
  - Heart rate increased [Unknown]
  - Diarrhoea [Unknown]
  - Muscle tightness [Unknown]
  - Anxiety [Unknown]
  - Irritability [Unknown]
  - Depressed mood [Unknown]
  - Tremor [Unknown]
  - Feeling of body temperature change [Unknown]
  - Feeling jittery [Unknown]
  - Depression [Unknown]
  - Nausea [Unknown]
  - Abdominal discomfort [Unknown]
  - Anger [Unknown]
